FAERS Safety Report 9182175 (Version 1)
Quarter: 2013Q1

REPORT INFORMATION
  Report Type: Spontaneous
  Country: US (occurrence: None)
  Receive Date: 20120621
  Receipt Date: 20120621
  Transmission Date: 20140127
  Serious: Yes (Hospitalization)
  Sender: FDA-Public Use
  Company Number: 037173

PATIENT
  Sex: Male

DRUGS (2)
  1. CIMZIA [Suspect]
     Route: 058
     Dates: start: 20110516
  2. HYDROCODONE [Concomitant]

REACTIONS (3)
  - Crohn^s disease [None]
  - Incorrect dose administered [None]
  - Drug administered at inappropriate site [None]
